FAERS Safety Report 8076551-8 (Version None)
Quarter: 2012Q1

REPORT INFORMATION
  Report Type: 
  Country: None (occurrence: None)
  Receive Date: 20120127
  Receipt Date: 20120117
  Transmission Date: 20120608
  Serious: Yes (Other)
  Sender: FDA-Public Use
  Company Number: BR-BRISTOL-MYERS SQUIBB COMPANY-16359424

PATIENT
  Age: 44 Year
  Sex: Male
  Weight: 68 kg

DRUGS (4)
  1. LAMIVUDINE [Suspect]
     Indication: HIV INFECTION
     Dosage: RESTARTED IN 08NOV11,FOR MANY YEARS
  2. RITONAVIR [Suspect]
     Indication: HIV INFECTION
     Dosage: RESTARTED IN 08NOV11
     Route: 048
  3. BACTRIM [Suspect]
     Indication: PROPHYLAXIS
     Dosage: 1 DF : 800/160MG
     Route: 048
  4. REYATAZ [Suspect]
     Indication: HIV INFECTION
     Dosage: ABANDONED FOR 2 YEARS,RESTARTED IN 08NOV11
     Route: 048

REACTIONS (1)
  - RENAL FAILURE ACUTE [None]
